FAERS Safety Report 8968651 (Version 2)
Quarter: 2013Q3

REPORT INFORMATION
  Report Type: Spontaneous
  Country: US (occurrence: US)
  Receive Date: 20121218
  Receipt Date: 20130725
  Transmission Date: 20140515
  Serious: No
  Sender: FDA-Public Use
  Company Number: US-BIOGENIDEC-2012BI060647

PATIENT
  Age: 41 Year
  Sex: Female

DRUGS (2)
  1. TYSABRI [Suspect]
     Indication: MULTIPLE SCLEROSIS
     Route: 042
     Dates: start: 20121015
  2. SOLUMEDROL [Concomitant]

REACTIONS (3)
  - Cognitive disorder [Unknown]
  - Thinking abnormal [Not Recovered/Not Resolved]
  - Nasopharyngitis [Recovered/Resolved]
